FAERS Safety Report 12467140 (Version 1)
Quarter: 2016Q2

REPORT INFORMATION
  Report Type: Spontaneous
  Country: US (occurrence: None)
  Receive Date: 20160614
  Receipt Date: 20160614
  Transmission Date: 20160815
  Serious: No
  Sender: FDA-Public Use
  Company Number: None

PATIENT

DRUGS (3)
  1. ADRENALIN CHLORIDE SOLUTION EPINEPHRINE CHLORIDE [Suspect]
     Active Substance: EPINEPHRINE
     Dosage: SOLUTION NASAL 1 MG/ML VIAL 30 ML?
     Route: 045
  2. ADRENALIN [Suspect]
     Active Substance: EPINEPHRINE
     Dosage: INJECTABLE IM OR SUBQ 1 MG/ML MULTIPLE DOSE VIAL 30 ML
     Route: 030
  3. EPINEPHRINE EPINEPHRINE [Suspect]
     Active Substance: EPINEPHRINE
     Dosage: INJECTABLE INJECTION MULTIPLE DOSE VIAL 30 ML

REACTIONS (2)
  - Product label confusion [None]
  - Circumstance or information capable of leading to medication error [None]
